FAERS Safety Report 14149824 (Version 1)
Quarter: 2017Q4

REPORT INFORMATION
  Report Type: Spontaneous
  Country: CN (occurrence: CN)
  Receive Date: 20171101
  Receipt Date: 20171101
  Transmission Date: 20180321
  Serious: Yes (Other)
  Sender: FDA-Public Use
  Company Number: CN-GILEAD-2017-0302086

PATIENT
  Age: 48 Year
  Sex: Male

DRUGS (1)
  1. ADEFOVIR DIPIVOXIL. [Suspect]
     Active Substance: ADEFOVIR DIPIVOXIL
     Indication: HEPATITIS B
     Dosage: 10 MG, QD
     Route: 065

REACTIONS (5)
  - Osteomalacia [Recovered/Resolved]
  - Arthralgia [Recovered/Resolved]
  - Hypophosphataemia [Recovered/Resolved]
  - Pain in extremity [Recovered/Resolved]
  - Bone density decreased [Recovered/Resolved]
